FAERS Safety Report 11258034 (Version 1)
Quarter: 2015Q2

REPORT INFORMATION
  Report Type: Spontaneous
  Country: US (occurrence: None)
  Receive Date: 20150617
  Receipt Date: 20150617
  Transmission Date: 20150821
  Serious: No
  Sender: FDA-Public Use
  Company Number: 2014TASUS000471

PATIENT
  Age: 56 Year
  Sex: Male
  Weight: 81.6 kg

DRUGS (9)
  1. PERCOCET (OXYCODONE HYDROCHLORIDE, PARACETAMOL) [Concomitant]
  2. VALIUM [Concomitant]
     Active Substance: DIAZEPAM
  3. LABETALOL [Concomitant]
     Active Substance: LABETALOL\LABETALOL HYDROCHLORIDE
  4. GABAPENTIN. [Concomitant]
     Active Substance: GABAPENTIN
  5. HETLIOZ [Suspect]
     Active Substance: TASIMELTEON
     Indication: CIRCADIAN RHYTHM SLEEP DISORDER
     Route: 048
     Dates: start: 20140801, end: 201408
  6. CYMBALTA [Concomitant]
     Active Substance: DULOXETINE HYDROCHLORIDE
  7. AMBIEN [Concomitant]
     Active Substance: ZOLPIDEM TARTRATE
  8. IBUPROFEN. [Concomitant]
     Active Substance: IBUPROFEN
  9. SOMA (CARLSOPRODOL) [Concomitant]

REACTIONS (1)
  - Headache [None]

NARRATIVE: CASE EVENT DATE: 20140801
